FAERS Safety Report 16909156 (Version 1)
Quarter: 2019Q4

REPORT INFORMATION
  Report Type: Spontaneous
  Country: FR (occurrence: FR)
  Receive Date: 20191011
  Receipt Date: 20191011
  Transmission Date: 20200122
  Serious: Yes (Life-Threatening, Other)
  Sender: FDA-Public Use
  Company Number: FR-PFIZER INC-2019435798

PATIENT
  Age: 54 Year
  Sex: Male
  Weight: 77 kg

DRUGS (5)
  1. ACTISKENAN [Suspect]
     Active Substance: MORPHINE SULFATE
     Dosage: 210 MG, SINGLE
     Route: 048
     Dates: start: 20190915, end: 20190915
  2. LORMETAZEPAM [Suspect]
     Active Substance: LORMETAZEPAM
     Dosage: 3 MG, SINGLE
     Route: 048
     Dates: start: 20190915, end: 20190915
  3. TOVIAZ [Suspect]
     Active Substance: FESOTERODINE FUMARATE
     Dosage: 32 MG, SINGLE
     Route: 048
     Dates: start: 20190915, end: 20190915
  4. IMOVANE [Suspect]
     Active Substance: ZOPICLONE
     Dosage: 30 MG, SINGLE
     Route: 048
     Dates: start: 20190915, end: 20190915
  5. ESCITALOPRAM [Suspect]
     Active Substance: ESCITALOPRAM OXALATE
     Dosage: 200 MG, SINGLE
     Route: 048
     Dates: start: 20190915, end: 20190915

REACTIONS (3)
  - Toxicity to various agents [Recovered/Resolved]
  - Coma [Recovered/Resolved]
  - Bradypnoea [Recovered/Resolved]

NARRATIVE: CASE EVENT DATE: 20190915
